FAERS Safety Report 9245761 (Version 1)
Quarter: 2013Q2

REPORT INFORMATION
  Report Type: Report from Study
  Country: US (occurrence: US)
  Receive Date: 20130422
  Receipt Date: 20130422
  Transmission Date: 20140414
  Serious: Yes (Other)
  Sender: FDA-Public Use
  Company Number: US-ROCHE-1200806

PATIENT
  Age: 44 Year
  Sex: Male
  Weight: 148.91 kg

DRUGS (1)
  1. RITUXAN [Suspect]
     Indication: RHEUMATOID ARTHRITIS
     Route: 042
     Dates: start: 20121120, end: 20121205

REACTIONS (3)
  - Infection [Unknown]
  - Knee arthroplasty [Recovered/Resolved]
  - Arthritis bacterial [Recovered/Resolved]
